FAERS Safety Report 17994829 (Version 10)
Quarter: 2020Q3

REPORT INFORMATION
  Report Type: Report from Study
  Country: KR (occurrence: KR)
  Receive Date: 20200708
  Receipt Date: 20200902
  Transmission Date: 20201103
  Serious: Yes (Hospitalization, Other)
  Sender: FDA-Public Use
  Company Number: KR-EISAI MEDICAL RESEARCH-EC-2020-076811

PATIENT
  Age: 71 Year
  Sex: Female
  Weight: 55.9 kg

DRUGS (11)
  1. ZEMIGLO [Concomitant]
     Dates: start: 20191224
  2. PEMBROLIZUMAB. [Suspect]
     Active Substance: PEMBROLIZUMAB
     Route: 041
     Dates: start: 20200605, end: 20200605
  3. NEURONTIN [Concomitant]
     Active Substance: GABAPENTIN
     Dates: start: 20181201, end: 20200625
  4. FENOFIBRATE. [Concomitant]
     Active Substance: FENOFIBRATE
     Dates: start: 20200418
  5. NEBILET [Concomitant]
     Active Substance: NEBIVOLOL
     Dates: start: 20200319, end: 20200627
  6. LENVATINIB [Suspect]
     Active Substance: LENVATINIB
     Indication: ENDOMETRIAL CANCER
     Route: 048
     Dates: start: 20200129, end: 20200622
  7. PEMBROLIZUMAB. [Suspect]
     Active Substance: PEMBROLIZUMAB
     Route: 041
     Dates: start: 20200714
  8. ATORVASTATIN CALCIUM. [Concomitant]
     Active Substance: ATORVASTATIN CALCIUM
     Dates: start: 20200418
  9. EDARBYCLOR [Concomitant]
     Active Substance: AZILSARTAN KAMEDOXOMIL\CHLORTHALIDONE
     Dates: start: 20200219, end: 20200627
  10. PEMBROLIZUMAB. [Suspect]
     Active Substance: PEMBROLIZUMAB
     Indication: ENDOMETRIAL CANCER
     Route: 041
     Dates: start: 20200129, end: 20200508
  11. MEGACE [Concomitant]
     Active Substance: MEGESTROL ACETATE
     Dates: start: 20200208, end: 20200622

REACTIONS (2)
  - Acute kidney injury [Recovered/Resolved]
  - Aortic embolus [Recovered/Resolved]

NARRATIVE: CASE EVENT DATE: 20200626
